FAERS Safety Report 4531255-0 (Version None)
Quarter: 2004Q4

REPORT INFORMATION
  Report Type: 
  Country: None (occurrence: None)
  Receive Date: 20041216
  Receipt Date: 20041202
  Transmission Date: 20050328
  Serious: Yes (Hospitalization)
  Sender: FDA-Public Use
  Company Number: 2004AP05937

PATIENT
  Age: 62 Year
  Sex: Female

DRUGS (28)
  1. IRESSA [Suspect]
     Indication: BREAST CANCER METASTATIC
     Dosage: 250 MG DAILY PO
     Route: 048
     Dates: start: 20040708, end: 20041114
  2. DOCETAXEL [Suspect]
     Indication: BREAST CANCER METASTATIC
     Dosage: 55 MG ONCE IV
     Route: 042
     Dates: start: 20040708, end: 20040708
  3. DOCETAXEL [Suspect]
     Indication: BREAST CANCER METASTATIC
     Dosage: 55 MG ONCE IV
     Route: 042
     Dates: start: 20040715, end: 20040715
  4. DOCETAXEL [Suspect]
     Indication: BREAST CANCER METASTATIC
     Dosage: 57 MG ONCE IV
     Route: 042
     Dates: start: 20040722, end: 20040722
  5. DOCETAXEL [Suspect]
     Indication: BREAST CANCER METASTATIC
     Dosage: 57 MG ONCE IV
     Route: 042
     Dates: start: 20040729, end: 20040729
  6. DOCETAXEL [Suspect]
     Indication: BREAST CANCER METASTATIC
     Dosage: 55 MG ONCE IV
     Route: 042
     Dates: start: 20040805, end: 20040805
  7. DOCETAXEL [Suspect]
     Indication: BREAST CANCER METASTATIC
     Dosage: 56 MG ONCE IV
     Route: 042
     Dates: start: 20040812, end: 20040812
  8. DOCETAXEL [Suspect]
     Indication: BREAST CANCER METASTATIC
     Dosage: 55 MG ONCE IV
     Route: 042
     Dates: start: 20040826, end: 20040826
  9. DOCETAXEL [Suspect]
     Indication: BREAST CANCER METASTATIC
     Dosage: 55 MG ONCE IV
     Route: 042
     Dates: start: 20040902, end: 20040902
  10. DOCETAXEL [Suspect]
     Indication: BREAST CANCER METASTATIC
     Dosage: 55 MG ONCE IV
     Route: 042
     Dates: start: 20040909, end: 20040909
  11. DOCETAXEL [Suspect]
     Indication: BREAST CANCER METASTATIC
     Dosage: 55 MG ONCE IV
     Route: 042
     Dates: start: 20040916, end: 20040916
  12. DOCETAXEL [Suspect]
     Indication: BREAST CANCER METASTATIC
     Dosage: 55 MG ONCE IV
     Route: 042
     Dates: start: 20040930, end: 20040930
  13. DOCETAXEL [Suspect]
     Indication: BREAST CANCER METASTATIC
     Dosage: 55 MG ONCE IV
     Route: 042
     Dates: start: 20041014, end: 20041014
  14. DOCETAXEL [Suspect]
     Indication: BREAST CANCER METASTATIC
     Dosage: 55 MG ONCE IV
     Route: 042
     Dates: start: 20041021, end: 20041021
  15. DOCETAXEL [Suspect]
     Indication: BREAST CANCER METASTATIC
     Dosage: 55 MG ONCE IV
     Route: 042
     Dates: start: 20041028, end: 20041028
  16. DOCETAXEL [Suspect]
     Indication: BREAST CANCER METASTATIC
     Dosage: 55 MG ONCE IV
     Route: 042
     Dates: start: 20041104, end: 20041104
  17. DOCETAXEL [Suspect]
     Indication: BREAST CANCER METASTATIC
     Dosage: 55 MG ONCE IV
     Route: 042
     Dates: start: 20041111, end: 20041111
  18. ZOFRAN [Concomitant]
  19. AFIPRAN [Concomitant]
  20. MORFINSULFAT [Concomitant]
  21. DICLOCIL [Concomitant]
  22. MEDROL [Concomitant]
  23. DURAGESIC [Concomitant]
  24. STILNOCT [Concomitant]
  25. SOMADRIL [Concomitant]
  26. PARACET [Concomitant]
  27. CIPRAMIL [Concomitant]
  28. RADIOTHERAPY [Concomitant]

REACTIONS (13)
  - CATHETER RELATED INFECTION [None]
  - DEPRESSION [None]
  - DIARRHOEA [None]
  - DISEASE PROGRESSION [None]
  - FACIAL PARESIS [None]
  - METASTASES TO BONE [None]
  - NAUSEA [None]
  - NEUROPATHY [None]
  - PARAESTHESIA [None]
  - PNEUMONIA [None]
  - POST PROCEDURAL COMPLICATION [None]
  - SEPSIS [None]
  - TINNITUS [None]
